FAERS Safety Report 16005963 (Version 1)
Quarter: 2019Q1

REPORT INFORMATION
  Report Type: Spontaneous
  Country: US (occurrence: US)
  Receive Date: 20190130
  Receipt Date: 20190130
  Transmission Date: 20190418
  Serious: Yes (Hospitalization)
  Sender: FDA-Public Use
  Company Number: None

PATIENT
  Age: 12 Year
  Sex: Female
  Weight: 29.8 kg

DRUGS (3)
  1. METHOTREXATE (740) [Suspect]
     Active Substance: METHOTREXATE
     Dates: end: 20190120
  2. VINCRISTINE SULFATE. [Concomitant]
     Active Substance: VINCRISTINE SULFATE
     Dates: end: 20190107
  3. ONCASPAR [Concomitant]
     Active Substance: PEGASPARGASE
     Dates: end: 20190120

REACTIONS (3)
  - Mucosal inflammation [None]
  - Feeding disorder [None]
  - Dehydration [None]

NARRATIVE: CASE EVENT DATE: 20190125
